FAERS Safety Report 22108738 (Version 2)
Quarter: 2023Q2

REPORT INFORMATION
  Report Type: Report from Study
  Country: US (occurrence: US)
  Receive Date: 20230317
  Receipt Date: 20230403
  Transmission Date: 20230721
  Serious: Yes (Hospitalization)
  Sender: FDA-Public Use
  Company Number: US-PFIZER INC-PV202300044551

PATIENT
  Age: 42 Year
  Sex: Male
  Weight: 83.9 kg

DRUGS (13)
  1. TALAZOPARIB [Suspect]
     Active Substance: TALAZOPARIB
     Dosage: UNK
     Dates: start: 20230120, end: 20230211
  2. ZEN-003694 [Suspect]
     Active Substance: ZEN-003694
     Dosage: UNK
     Dates: start: 20230120, end: 20230211
  3. ACETAMINOPHEN [Concomitant]
     Active Substance: ACETAMINOPHEN
  4. CHOLECALCIFEROL [Concomitant]
     Active Substance: CHOLECALCIFEROL
  5. FENTANYL [Concomitant]
     Active Substance: FENTANYL
  6. FERROUS SULFATE [Concomitant]
     Active Substance: FERROUS SULFATE
  7. LOPERAMIDE [Concomitant]
     Active Substance: LOPERAMIDE
  8. METHYLPHENIDATE [Concomitant]
     Active Substance: METHYLPHENIDATE
  9. METOPROLOL SUCCINATE [Concomitant]
     Active Substance: METOPROLOL SUCCINATE
  10. OXYCODONE [Concomitant]
     Active Substance: OXYCODONE
  11. NALOXONE [Concomitant]
     Active Substance: NALOXONE
  12. BALSAM PERU + CASTOR OIL [Concomitant]
  13. PROCHLORPERAZINE [Concomitant]
     Active Substance: PROCHLORPERAZINE

REACTIONS (2)
  - Blood bilirubin increased [Not Recovered/Not Resolved]
  - Small intestinal obstruction [Not Recovered/Not Resolved]

NARRATIVE: CASE EVENT DATE: 20230210
